FAERS Safety Report 7425343-9 (Version None)
Quarter: 2011Q2

REPORT INFORMATION
  Report Type: 
  Country: None (occurrence: None)
  Receive Date: 20110420
  Receipt Date: 20110408
  Transmission Date: 20111010
  Serious: Yes (Hospitalization)
  Sender: FDA-Public Use
  Company Number: PHFR2011GB02492

PATIENT
  Age: 4 Year
  Sex: Female

DRUGS (2)
  1. PAMIDRONATE DISODIUM [Suspect]
     Indication: HYPERCALCAEMIA
  2. CALCITONIN [Suspect]
     Indication: HYPERCALCAEMIA

REACTIONS (1)
  - NO THERAPEUTIC RESPONSE [None]
